FAERS Safety Report 6239586-3 (Version None)
Quarter: 2009Q2

REPORT INFORMATION
  Report Type: 
  Country: None (occurrence: None)
  Receive Date: 20090619
  Receipt Date: 20090611
  Transmission Date: 20091009
  Serious: Yes (Other)
  Sender: FDA-Public Use
  Company Number: 2009JP000020

PATIENT
  Age: 7 Year
  Sex: Female
  Weight: 21 kg

DRUGS (7)
  1. PROTOPIC [Suspect]
     Indication: DERMATITIS ATOPIC
     Dosage: 0.03%, TOPICAL
     Route: 061
     Dates: start: 20051022
  2. MYSER (DIFLUPREDNATE) OINTMENT [Concomitant]
  3. BESOFTEN (MUCOPOLYSACCHARIDE POLYSULFURIC  ACID ESTER) OINTMENT [Concomitant]
  4. HIRUDOID (HEPARINOID) LOTION [Concomitant]
  5. HIRUDOID (HEPARINOID) CREAM [Concomitant]
  6. PROPETO (WHITE SOFT PARAFFIN) EXTERNAL [Concomitant]
  7. KETOTIFEN FUMARATE [Concomitant]

REACTIONS (2)
  - HERPES SIMPLEX OPHTHALMIC [None]
  - KAPOSI'S VARICELLIFORM ERUPTION [None]
